FAERS Safety Report 24564923 (Version 1)
Quarter: 2024Q4

REPORT INFORMATION
  Report Type: Spontaneous
  Country: CA (occurrence: CA)
  Receive Date: 20241030
  Receipt Date: 20241030
  Transmission Date: 20250115
  Serious: Yes (Other)
  Sender: PFIZER
  Company Number: CA-PFIZER INC-202400287626

PATIENT
  Age: 52 Year
  Sex: Male

DRUGS (23)
  1. DOCETAXEL [Suspect]
     Active Substance: DOCETAXEL
     Dosage: UNK
  2. GEMCITABINE HYDROCHLORIDE [Suspect]
     Active Substance: GEMCITABINE HYDROCHLORIDE
     Dosage: UNK
  3. LORBRENA [Suspect]
     Active Substance: LORLATINIB
     Indication: Pancreatic carcinoma metastatic
     Dosage: UNK
  4. OXALIPLATIN [Suspect]
     Active Substance: OXALIPLATIN
     Indication: Pancreatic carcinoma metastatic
     Dosage: UNK
  5. TRASTUZUMAB [Suspect]
     Active Substance: TRASTUZUMAB
     Indication: Pancreatic carcinoma metastatic
     Dosage: UNK
  6. CAPECITABINE [Suspect]
     Active Substance: CAPECITABINE
     Indication: Pancreatic carcinoma metastatic
     Dosage: UNK
  7. KEYTRUDA [Suspect]
     Active Substance: PEMBROLIZUMAB
     Indication: Pancreatic carcinoma metastatic
     Dosage: UNK
  8. PEMETREXED [Suspect]
     Active Substance: PEMETREXED
     Indication: Pancreatic carcinoma metastatic
     Dosage: UNK
  9. ALUNBRIG [Concomitant]
     Active Substance: BRIGATINIB
     Dosage: UNK
  10. CISPLATIN [Concomitant]
     Active Substance: CISPLATIN
     Dosage: UNK
     Route: 042
  11. ENHERTU [Concomitant]
     Active Substance: FAM-TRASTUZUMAB DERUXTECAN-NXKI
     Dosage: UNK
  12. FLUOROURACIL [Concomitant]
     Active Substance: FLUOROURACIL
     Dosage: UNK
  13. LEUCOVORIN [Concomitant]
     Active Substance: LEUCOVORIN\LEUCOVORIN CALCIUM
     Dosage: UNK
  14. IRINOTECAN HYDROCHLORIDE [Concomitant]
     Active Substance: IRINOTECAN HYDROCHLORIDE
     Dosage: UNK
  15. LIPIODOL ULTRA-FLUIDE [Concomitant]
     Active Substance: ETHIODIZED OIL
     Dosage: LIQUID INTRACAVITY
  16. MITOMYCIN [Concomitant]
     Active Substance: MITOMYCIN
     Dosage: UNK
  17. PACLITAXEL [Concomitant]
     Active Substance: PACLITAXEL
     Dosage: UNK
  18. BEVACIZUMAB [Concomitant]
     Active Substance: BEVACIZUMAB
     Dosage: UNK
     Route: 042
  19. DEMCIZUMAB [Concomitant]
     Active Substance: DEMCIZUMAB
     Dosage: UNK
  20. AMILOMER [Concomitant]
     Active Substance: AMILOMER
     Dosage: UNK
  21. ENTRECTINIB [Concomitant]
     Active Substance: ENTRECTINIB
     Dosage: UNK
  22. OSIMERTINIB [Concomitant]
     Active Substance: OSIMERTINIB
     Dosage: UNK
  23. PERTUZUMAB [Concomitant]
     Active Substance: PERTUZUMAB
     Dosage: UNK

REACTIONS (1)
  - Pancytopenia [Unknown]
